FAERS Safety Report 16781532 (Version 1)
Quarter: 2019Q3

REPORT INFORMATION
  Report Type: Spontaneous
  Country: CR (occurrence: CR)
  Receive Date: 20190906
  Receipt Date: 20190906
  Transmission Date: 20191005
  Serious: Yes (Other)
  Sender: FDA-Public Use
  Company Number: CR-PFIZER INC-2019384928

PATIENT
  Age: 40 Year
  Sex: Female

DRUGS (1)
  1. EFEXOR [Suspect]
     Active Substance: VENLAFAXINE HYDROCHLORIDE
     Indication: ANXIETY
     Dosage: 150-225 MG, UNKNOWN FREQUENCY

REACTIONS (1)
  - Hypoacusis [Unknown]
